FAERS Safety Report 11740845 (Version 2)
Quarter: 2015Q4

REPORT INFORMATION
  Report Type: Spontaneous
  Country: FR (occurrence: FR)
  Receive Date: 20151114
  Receipt Date: 20151117
  Transmission Date: 20160304
  Serious: Yes (Hospitalization)
  Sender: FDA-Public Use
  Company Number: FR-EMD SERONO-8052261

PATIENT
  Age: 29 Year
  Sex: Female

DRUGS (9)
  1. GONAL-F [Suspect]
     Active Substance: FOLLITROPIN
     Indication: IN VITRO FERTILISATION
     Route: 058
     Dates: start: 20150606, end: 20150616
  2. CETROTIDE [Suspect]
     Active Substance: CETRORELIX ACETATE
     Indication: IN VITRO FERTILISATION
     Route: 058
     Dates: start: 201506, end: 201506
  3. CETROTIDE [Suspect]
     Active Substance: CETRORELIX ACETATE
     Indication: POLYCYSTIC OVARIES
  4. OVITRELLE [Suspect]
     Active Substance: CHORIOGONADOTROPIN ALFA
     Indication: IN VITRO FERTILISATION
     Dosage: FORM STRENGTH: 250 MICROGRAMS/0.5 ML.
     Route: 058
     Dates: start: 20150617
  5. CETROTIDE [Suspect]
     Active Substance: CETRORELIX ACETATE
     Indication: INFERTILITY MALE
  6. OVITRELLE [Suspect]
     Active Substance: CHORIOGONADOTROPIN ALFA
     Indication: INFERTILITY MALE
  7. OVITRELLE [Suspect]
     Active Substance: CHORIOGONADOTROPIN ALFA
     Indication: POLYCYSTIC OVARIES
  8. GONAL-F [Suspect]
     Active Substance: FOLLITROPIN
     Indication: POLYCYSTIC OVARIES
  9. GONAL-F [Suspect]
     Active Substance: FOLLITROPIN
     Indication: INFERTILITY MALE

REACTIONS (2)
  - Ovarian hyperstimulation syndrome [Recovered/Resolved]
  - Vomiting [Recovered/Resolved]

NARRATIVE: CASE EVENT DATE: 20150622
